FAERS Safety Report 4263428-9 (Version None)
Quarter: 2004Q1

REPORT INFORMATION
  Report Type: 
  Country: None (occurrence: None)
  Receive Date: 20040104
  Receipt Date: 20040104
  Transmission Date: 20041129
  Serious: Yes (Life-Threatening, Other)
  Sender: FDA-Public Use
  Company Number: None

PATIENT
  Age: 16 Year
  Sex: Male
  Weight: 61.2356 kg

DRUGS (1)
  1. ANIMAS INSULIN PUMP ANIMAS [Suspect]
     Indication: DIABETES MELLITUS
     Dosage: INTRAVENOUS
     Route: 042
     Dates: start: 20011115, end: 20021231

REACTIONS (1)
  - DEVICE FAILURE [None]
